FAERS Safety Report 8609798-X (Version None)
Quarter: 2012Q3

REPORT INFORMATION
  Report Type: 
  Country: None (occurrence: None)
  Receive Date: 20120821
  Receipt Date: 20120814
  Transmission Date: 20120928
  Serious: Yes (Other)
  Sender: FDA-Public Use
  Company Number: PHHY2012US070504

PATIENT
  Age: 70 Year
  Sex: Male

DRUGS (4)
  1. PLAVIX [Concomitant]
  2. OXYGEN [Concomitant]
  3. ASPIRIN [Suspect]
     Indication: ANTICOAGULANT THERAPY
  4. ASPIRIN [Suspect]
     Indication: MYOCARDIAL INFARCTION
     Dosage: 1 DF, AND SOME TIMES 2 DF
     Route: 048
     Dates: start: 19820925

REACTIONS (12)
  - GAIT DISTURBANCE [None]
  - GASTROOESOPHAGEAL REFLUX DISEASE [None]
  - SLEEP DISORDER [None]
  - FATIGUE [None]
  - CUBITAL TUNNEL SYNDROME [None]
  - CARPAL TUNNEL SYNDROME [None]
  - INTERVERTEBRAL DISC DISORDER [None]
  - MYOCARDIAL INFARCTION [None]
  - SLEEP APNOEA SYNDROME [None]
  - CONGESTIVE CARDIOMYOPATHY [None]
  - NEURALGIA [None]
  - INCORRECT DRUG ADMINISTRATION DURATION [None]
